FAERS Safety Report 7936042-9 (Version None)
Quarter: 2011Q4

REPORT INFORMATION
  Report Type: 
  Country: None (occurrence: None)
  Receive Date: 20111121
  Receipt Date: 20111109
  Transmission Date: 20120403
  Serious: Yes (Hospitalization, Other)
  Sender: FDA-Public Use
  Company Number: LEO-2011-00971

PATIENT
  Age: 83 Year
  Sex: Female

DRUGS (5)
  1. AMLODIPINE ACCORD (AMLODIPINE) [Concomitant]
  2. SELOKEN ZOC (ACETYLSALICYLIC ACID, METOPROLOL SUCCINATE) [Concomitant]
  3. INNOHEP [Suspect]
     Indication: THROMBOSIS PROPHYLAXIS
     Dosage: SUBCUTANEOUS
     Route: 058
     Dates: start: 20110922, end: 20110925
  4. ACETAMINOPHEN [Concomitant]
  5. IPREN (IBUPROFEN) [Concomitant]

REACTIONS (6)
  - NAUSEA [None]
  - GENERAL PHYSICAL CONDITION ABNORMAL [None]
  - ERYTHEMA [None]
  - EYE SWELLING [None]
  - ORBITAL OEDEMA [None]
  - DIPLOPIA [None]
